FAERS Safety Report 11270570 (Version 1)
Quarter: 2015Q3

REPORT INFORMATION
  Report Type: Spontaneous
  Country: CA (occurrence: CA)
  Receive Date: 20150714
  Receipt Date: 20150714
  Transmission Date: 20151125
  Serious: Yes (Other)
  Sender: FDA-Public Use
  Company Number: PHHY2015CA080325

PATIENT
  Age: 31 Year
  Sex: Female

DRUGS (3)
  1. LISPRO INSULIN [Concomitant]
     Active Substance: INSULIN LISPRO
     Indication: TYPE 2 DIABETES MELLITUS
     Dosage: 14 U, TID (BEFORE BREAK FAST, LUNCH AND DINNER)
     Route: 058
  2. PROTAMINE [Concomitant]
     Active Substance: PROTAMINE
     Indication: TYPE 2 DIABETES MELLITUS
     Dosage: 12 U, QD (AT BED TIME)
     Route: 065
  3. BROMOCRIPTINE [Suspect]
     Active Substance: BROMOCRIPTINE
     Indication: LACTATION INHIBITION THERAPY
     Dosage: 5 MG, QD (30 DAYS)
     Route: 065

REACTIONS (5)
  - Vasospasm [Unknown]
  - Angiopathy [Unknown]
  - Cerebrovascular accident [Unknown]
  - Hypopituitarism [Unknown]
  - Amenorrhoea [Unknown]
